FAERS Safety Report 5581923-7 (Version None)
Quarter: 2008Q1

REPORT INFORMATION
  Report Type: 
  Country: None (occurrence: None)
  Receive Date: 20080104
  Receipt Date: 20080101
  Transmission Date: 20080703
  Serious: Yes (Other)
  Sender: FDA-Public Use
  Company Number: GB-ALLERGAN-0707303US

PATIENT
  Sex: Male

DRUGS (13)
  1. OCUFEN [Suspect]
     Indication: PREOPERATIVE CARE
     Dosage: UNK, UNK
     Route: 047
     Dates: start: 20070402, end: 20070402
  2. OCUFEN [Suspect]
     Route: 047
  3. OCUFEN [Suspect]
     Route: 047
  4. CYCLOPENTOLATE HCL [Suspect]
     Indication: PREOPERATIVE CARE
     Dosage: UNK, UNK
     Route: 047
     Dates: start: 20070402, end: 20070402
  5. PHENYLEPHRINE [Suspect]
     Indication: PREOPERATIVE CARE
     Dosage: UNK, UNK
     Route: 047
     Dates: start: 20070402, end: 20070402
  6. PROXYMETACAINE [Suspect]
     Indication: PERIOPERATIVE ANALGESIA
     Dosage: UNK, UNK
     Route: 065
     Dates: start: 20070402, end: 20070402
  7. POVIDONE IODINE [Suspect]
     Indication: CATARACT OPERATION
     Dosage: UNK, UNK
     Route: 047
     Dates: start: 20070402, end: 20070402
  8. BALANCED SALT SOLUTION [Suspect]
     Indication: PREOPERATIVE CARE
     Dates: start: 20070402
  9. LIDOCAINE [Suspect]
     Indication: ANAESTHESIA
     Dosage: 2 ML, UNK
     Route: 047
     Dates: start: 20070402, end: 20070402
  10. HYALURONIDASE [Suspect]
     Indication: CATARACT OPERATION
     Dosage: UNK, UNK
     Route: 047
     Dates: start: 20070402, end: 20070402
  11. BETAMETHASONE/NEOMYCIN [Suspect]
     Indication: POSTOPERATIVE CARE
     Dosage: UNK, UNK
     Route: 047
     Dates: start: 20070402, end: 20070402
  12. ADRENALINE [Suspect]
     Indication: EYE IRRIGATION
     Dosage: 0.3 ML, UNK
     Route: 047
     Dates: start: 20070402, end: 20070402
  13. VANCOMYCIN [Suspect]
     Indication: EYE IRRIGATION
     Dosage: 10 MG, UNK
     Route: 047
     Dates: start: 20070402, end: 20070402

REACTIONS (1)
  - TOXIC ANTERIOR SEGMENT SYNDROME [None]
